FAERS Safety Report 12443991 (Version 2)
Quarter: 2017Q2

REPORT INFORMATION
  Report Type: Spontaneous
  Country: US (occurrence: US)
  Receive Date: 20160607
  Receipt Date: 20170517
  Transmission Date: 20170830
  Serious: No
  Sender: FDA-Public Use
  Company Number: US-SA-2016SA099594

PATIENT
  Age: 52 Year
  Sex: Male
  Weight: 120.2 kg

DRUGS (3)
  1. SOLOSTAR [Concomitant]
     Active Substance: DEVICE
     Indication: TYPE 2 DIABETES MELLITUS
     Dates: start: 201512
  2. LANTUS [Concomitant]
     Active Substance: INSULIN GLARGINE
     Dates: start: 201503, end: 201512
  3. TOUJEO [Suspect]
     Active Substance: INSULIN GLARGINE
     Indication: TYPE 2 DIABETES MELLITUS
     Dosage: DOSE: 44 UNITS QAM AND 78 UNITS QPM
     Route: 065
     Dates: start: 20151109, end: 20160621

REACTIONS (2)
  - Product use issue [Unknown]
  - Blood glucose abnormal [Recovered/Resolved]
